FAERS Safety Report 11433279 (Version 1)
Quarter: 2015Q3

REPORT INFORMATION
  Report Type: Spontaneous
  Country: US (occurrence: None)
  Receive Date: 20150827
  Receipt Date: 20150827
  Transmission Date: 20151125
  Serious: Yes (Hospitalization)
  Sender: FDA-Public Use
  Company Number: US-2015INT000507

PATIENT
  Age: 58 Year
  Sex: Female
  Weight: 110 kg

DRUGS (3)
  1. RADIOTHERAPY [Suspect]
     Active Substance: RADIATION THERAPY
     Indication: LUNG NEOPLASM MALIGNANT
     Dosage: 6300 CGY
  2. CISPLATIN. [Suspect]
     Active Substance: CISPLATIN
     Indication: LUNG NEOPLASM MALIGNANT
     Dosage: INITIAL FULL-DOSE
  3. ETOPOSIDE (ETOPOSIDE) [Suspect]
     Active Substance: ETOPOSIDE
     Indication: LUNG NEOPLASM MALIGNANT

REACTIONS (4)
  - Dehydration [None]
  - Oesophagitis [None]
  - Hypotension [None]
  - Asthenia [None]
